FAERS Safety Report 6678602-1 (Version None)
Quarter: 2010Q2

REPORT INFORMATION
  Report Type: 
  Country: None (occurrence: None)
  Receive Date: 20100413
  Receipt Date: 20100402
  Transmission Date: 20101027
  Serious: Yes (Life-Threatening, Hospitalization)
  Sender: FDA-Public Use
  Company Number: US-JNJFOC-20040604427

PATIENT
  Age: 2 Year
  Sex: Female

DRUGS (2)
  1. ACETAMINOPHEN [Suspect]
  2. ACETAMINOPHEN [Suspect]
     Indication: DRUG USE FOR UNKNOWN INDICATION
     Dosage: 19 TIMES THE DOSE

REACTIONS (8)
  - ACCIDENTAL EXPOSURE [None]
  - CONVULSION [None]
  - HEPATIC FAILURE [None]
  - HEPATIC NECROSIS [None]
  - INFECTION [None]
  - ORGAN FAILURE [None]
  - OVERDOSE [None]
  - RENAL FAILURE [None]
